FAERS Safety Report 24297881 (Version 1)
Quarter: 2024Q3

REPORT INFORMATION
  Report Type: Spontaneous
  Country: ZA (occurrence: ZA)
  Receive Date: 20240909
  Receipt Date: 20240909
  Transmission Date: 20241017
  Serious: Yes (Hospitalization)
  Sender: BAYER
  Company Number: ZA-BAYER-2024A126223

PATIENT
  Age: 36 Year
  Sex: Female

DRUGS (26)
  1. DROSPIRENONE\ETHINYL ESTRADIOL\LEVOMEFOLATE CALCIUM [Suspect]
     Active Substance: DROSPIRENONE\ETHINYL ESTRADIOL\LEVOMEFOLATE CALCIUM
     Indication: Contraception
     Dosage: TAKE ONE TABLET
     Route: 048
  2. NEXIFLUX [Concomitant]
     Indication: Gastrooesophageal reflux disease
     Dosage: 40 MG, QD
     Route: 048
  3. Stilpane [Concomitant]
     Indication: Pain
     Dosage: TAKE ONE TABLET THREE TIMES A DAY
     Route: 048
  4. MEBEVERINE [Concomitant]
     Active Substance: MEBEVERINE
     Indication: Irritable bowel syndrome
     Dosage: 135 MG, TID
     Route: 048
  5. ESOMEPRAZOLE [Concomitant]
     Active Substance: ESOMEPRAZOLE
     Indication: Gastrooesophageal reflux disease
     Dosage: 40 MG, QD, AT NIGHT
     Route: 048
  6. METRONIDAZOLE [Concomitant]
     Active Substance: METRONIDAZOLE
     Dosage: 400 MG, TID
     Route: 048
  7. Betamox [Concomitant]
     Dosage: 1000 MG, BID
     Route: 048
  8. BUDESONIDE\FORMOTEROL [Concomitant]
     Active Substance: BUDESONIDE\FORMOTEROL
     Indication: Asthma
     Dosage: 160/4.5 MCG TAKE ONE PUFF
     Route: 045
  9. OMEPRAZOLE [Concomitant]
     Active Substance: OMEPRAZOLE
     Indication: Gastrooesophageal reflux disease
     Dosage: 40 MG, QD
     Route: 048
  10. Belair [Concomitant]
     Indication: Asthma
     Dosage: 10 MG, QD
     Route: 048
  11. PHENTERMINE [Concomitant]
     Active Substance: PHENTERMINE\PHENTERMINE HYDROCHLORIDE
     Dosage: 30 MG, QD
  12. SCOPEX [Concomitant]
     Dosage: 10 MG, QD
     Route: 048
  13. Synaleve [Concomitant]
     Indication: Pain
     Route: 048
  14. CELEBREX [Concomitant]
     Active Substance: CELECOXIB
     Indication: Pain
     Dosage: 100 MG, QD
     Route: 048
  15. PRERICA [Concomitant]
     Indication: Epilepsy
     Dosage: 75 MG, QD, AT NIGHT
     Route: 048
  16. MYOSPAS [Concomitant]
     Dosage: 750 MG, BID
     Route: 048
  17. Chloramex [Concomitant]
     Dosage: 1 % AS DIRECTED APPLY DAILY
     Route: 061
  18. SPERSALLERG [Concomitant]
     Dosage: INSTIL ONE DROP
     Route: 047
  19. INFLUVAC TETRA [Concomitant]
     Active Substance: INFLUENZA VIRUS VACCINE QUADRIVALENT TYPE A+B
     Dosage: AS DIRECTED ONCE
     Route: 058
  20. PREDNISONE [Concomitant]
     Active Substance: PREDNISONE
     Dosage: 10 MG, BID (5 MG TAKE TWO TABLETS TWICE A DAY)
     Route: 048
  21. NEURONTIN [Concomitant]
     Active Substance: GABAPENTIN
     Indication: Epilepsy
     Dosage: 300 MG, QD, AT NIGHT
     Route: 048
  22. FLUTICASONE FUROATE [Concomitant]
     Active Substance: FLUTICASONE FUROATE
     Indication: Hypersensitivity
     Dosage: 27.5 MCG AS DIRECTED ONCE
     Route: 045
  23. AUSTELL FLUCONAZOLE [Concomitant]
     Dosage: 200 MG, QD
     Route: 048
  24. XERASPOR [Concomitant]
     Dosage: 1 % DIRECTIONS APPLY ONCE
     Route: 061
  25. Buscopan compositum [Concomitant]
     Dosage: TAKE ONE TABLET TWICE A DAY
     Route: 048
  26. Fluxtrin [Concomitant]
     Indication: Gastrooesophageal reflux disease
     Dosage: 20 MG, QD
     Route: 048

REACTIONS (1)
  - Gallbladder operation [None]
